FAERS Safety Report 7487939-8 (Version None)
Quarter: 2011Q2

REPORT INFORMATION
  Report Type: 
  Country: None (occurrence: None)
  Receive Date: 20110511
  Receipt Date: 20110426
  Transmission Date: 20111010
  Serious: Yes (Disabling, Other)
  Sender: FDA-Public Use
  Company Number: AUR-APL-2011-01456

PATIENT
  Age: 12 Year
  Sex: Male

DRUGS (5)
  1. RISPERIDONE [Suspect]
     Dosage: ORAL
     Route: 048
     Dates: start: 20060101, end: 20060101
  2. CONCERTE XL [Concomitant]
  3. RISPERIDONE [Suspect]
     Dosage: 0.5MG -ORAL
     Route: 048
     Dates: start: 20101223, end: 20110216
  4. EQUASYM [Concomitant]
  5. FLUOXETINE [Concomitant]

REACTIONS (3)
  - ABDOMINAL PAIN UPPER [None]
  - APHAGIA [None]
  - INSOMNIA [None]
